FAERS Safety Report 18071223 (Version 1)
Quarter: 2020Q3

REPORT INFORMATION
  Report Type: Spontaneous
  Country: CA (occurrence: CA)
  Receive Date: 20200727
  Receipt Date: 20200727
  Transmission Date: 20201103
  Serious: Yes (Other)
  Sender: FDA-Public Use
  Company Number: CA-SUN PHARMACEUTICAL INDUSTRIES LTD-2020R1-254166

PATIENT
  Age: 2 Year
  Sex: Male

DRUGS (1)
  1. VALPROIC ACID. [Suspect]
     Active Substance: VALPROIC ACID
     Indication: MYOCLONUS
     Dosage: 38 MILLIGRAM/KILOGRAM, DAILY
     Route: 065

REACTIONS (3)
  - Pancreatitis [Unknown]
  - Thrombocytopenia [Unknown]
  - Coagulopathy [Unknown]
